FAERS Safety Report 8910588 (Version 12)
Quarter: 2014Q2

REPORT INFORMATION
  Report Type: Spontaneous
  Country: US (occurrence: US)
  Receive Date: 20121114
  Receipt Date: 20140522
  Transmission Date: 20141212
  Serious: Yes (Death, Hospitalization)
  Sender: FDA-Public Use
  Company Number: US-GLAXOSMITHKLINE-A1000911A

PATIENT
  Age: 60 Year
  Sex: Female

DRUGS (4)
  1. FLOLAN [Suspect]
     Indication: PULMONARY ARTERIAL HYPERTENSION
     Dosage: 28NGKM CONTINUOUS
     Route: 042
     Dates: start: 20080118, end: 20140423
  2. ANESTHESIA [Suspect]
     Indication: PRODUCT USED FOR UNKNOWN INDICATION
  3. REVATIO [Concomitant]
  4. COUMADIN [Concomitant]

REACTIONS (13)
  - Coma [Unknown]
  - Investigation [Unknown]
  - Staphylococcal infection [Unknown]
  - Upper limb fracture [Unknown]
  - Fall [Unknown]
  - Gallbladder disorder [Unknown]
  - Oedema [Unknown]
  - Weight increased [Unknown]
  - Fluid retention [Unknown]
  - Vomiting [Unknown]
  - Right ventricular failure [Fatal]
  - Localised intraabdominal fluid collection [Unknown]
  - Paracentesis [Unknown]
